FAERS Safety Report 5839663-2 (Version None)
Quarter: 2008Q3

REPORT INFORMATION
  Report Type: 
  Country: None (occurrence: None)
  Receive Date: 20080811
  Receipt Date: 20080804
  Transmission Date: 20090109
  Serious: Yes (Hospitalization)
  Sender: FDA-Public Use
  Company Number: DE-TEVA-175395ISR

PATIENT
  Age: 82 Year
  Sex: Female

DRUGS (2)
  1. METHOTREXATE [Suspect]
     Route: 058
  2. PREDNISONE TAB [Concomitant]

REACTIONS (2)
  - NEUROTOXICITY [None]
  - PNEUMONITIS [None]
